FAERS Safety Report 5776338-2 (Version None)
Quarter: 2008Q2

REPORT INFORMATION
  Report Type: 
  Country: None (occurrence: None)
  Receive Date: 20080618
  Receipt Date: 20080404
  Transmission Date: 20081010
  Serious: No
  Sender: FDA-Public Use
  Company Number: US-BAYER-200819510NA

PATIENT
  Age: 20 Year
  Sex: Female
  Weight: 52 kg

DRUGS (2)
  1. YAZ [Suspect]
     Indication: ACNE
     Route: 048
     Dates: start: 20080110
  2. PROACTIVE NOS [Concomitant]

REACTIONS (1)
  - EYELID OEDEMA [None]
